FAERS Safety Report 6740797-9 (Version None)
Quarter: 2010Q2

REPORT INFORMATION
  Report Type: 
  Country: None (occurrence: None)
  Receive Date: 20100525
  Receipt Date: 20100525
  Transmission Date: 20101027
  Serious: Yes (Hospitalization)
  Sender: FDA-Public Use
  Company Number: None

PATIENT
  Sex: Female
  Weight: 9.2 kg

DRUGS (4)
  1. CARBOPLATIN [Suspect]
     Dosage: 368 MG
  2. ETOPOSIDE [Suspect]
     Dosage: 248 MG
  3. G-CSF (FILGRASTIM, AMGEN) [Suspect]
     Dosage: 594 MCG
  4. MELPHALAN HYDROCHLORIDE [Suspect]
     Dosage: 54 MG

REACTIONS (7)
  - ADENOVIRUS TEST POSITIVE [None]
  - BLOOD BILIRUBIN INCREASED [None]
  - GASTROINTESTINAL HAEMORRHAGE [None]
  - HAEMATURIA [None]
  - PYREXIA [None]
  - RENAL FAILURE [None]
  - ROSEOLOVIRUS TEST POSITIVE [None]
